FAERS Safety Report 5623191-3 (Version None)
Quarter: 2008Q1

REPORT INFORMATION
  Report Type: 
  Country: None (occurrence: None)
  Receive Date: 20080212
  Receipt Date: 20080130
  Transmission Date: 20080703
  Serious: Yes (Hospitalization)
  Sender: FDA-Public Use
  Company Number: AR-ROCHE-501522

PATIENT
  Age: 37 Year
  Sex: Female
  Weight: 66.5 kg

DRUGS (9)
  1. MYCOPHENOLATE MOFETIL [Suspect]
     Indication: LUPUS NEPHRITIS
     Dosage: INDUCTION PHASE.
     Route: 048
     Dates: start: 20061009, end: 20061107
  2. MYCOPHENOLATE MOFETIL [Suspect]
     Indication: LUPUS NEPHRITIS
     Dosage: MAINTENANCE PHASE.
     Route: 048
     Dates: start: 20061107
  3. AZATHIOPRINE [Suspect]
     Indication: LUPUS NEPHRITIS
     Route: 048
     Dates: start: 20061107
  4. MEPREDNISONE [Suspect]
     Indication: LUPUS NEPHRITIS
     Route: 048
     Dates: start: 20061004, end: 20070322
  5. MEPREDNISONE [Suspect]
     Route: 048
     Dates: start: 20070323, end: 20070424
  6. MEPREDNISONE [Suspect]
     Route: 048
     Dates: start: 20070425, end: 20070501
  7. MEPREDNISONE [Suspect]
     Route: 048
     Dates: start: 20070502, end: 20070606
  8. MEPREDNISONE [Suspect]
     Route: 048
     Dates: start: 20070607
  9. OMEPRAZOLE [Concomitant]
     Dates: start: 20050101

REACTIONS (1)
  - PNEUMONIA [None]
